FAERS Safety Report 13433050 (Version 2)
Quarter: 2017Q2

REPORT INFORMATION
  Report Type: Spontaneous
  Country: CN (occurrence: CN)
  Receive Date: 20170412
  Receipt Date: 20170418
  Transmission Date: 20170830
  Serious: Yes (Hospitalization, Other)
  Sender: FDA-Public Use
  Company Number: CN-PFIZER INC-2017156032

PATIENT
  Age: 73 Year
  Sex: Male
  Weight: 65 kg

DRUGS (3)
  1. GLUCOSAMINE SULFATE [Suspect]
     Active Substance: GLUCOSAMINE SULFATE
     Indication: OSTEOARTHRITIS
     Dosage: 2 DF, 3X/DAY
     Route: 048
     Dates: start: 20170208, end: 20170209
  2. CELECOXIB. [Suspect]
     Active Substance: CELECOXIB
     Indication: OSTEOARTHRITIS
     Dosage: 1 DF, 1X/DAY
     Route: 048
     Dates: start: 20170208, end: 20170209
  3. ALFACALCIDOL [Suspect]
     Active Substance: ALFACALCIDOL
     Indication: OSTEOARTHRITIS
     Dosage: 2 DF, 1X/DAY
     Route: 048
     Dates: start: 20170207, end: 20170209

REACTIONS (1)
  - Epidermolysis bullosa [Unknown]

NARRATIVE: CASE EVENT DATE: 20170209
